FAERS Safety Report 11005800 (Version 1)
Quarter: 2015Q2

REPORT INFORMATION
  Report Type: Report from Study
  Country: US (occurrence: US)
  Receive Date: 20150409
  Receipt Date: 20150409
  Transmission Date: 20150821
  Serious: Yes (Hospitalization)
  Sender: FDA-Public Use
  Company Number: US-ALLERGAN-1506150US

PATIENT
  Age: 46 Year
  Sex: Female
  Weight: 52.61 kg

DRUGS (2)
  1. BOTULINUM TOXIN TYPE A - GENERAL (9060X) [Suspect]
     Active Substance: BOTULINUM TOXIN TYPE A
     Indication: MUSCLE SPASTICITY
     Dosage: UNK, SINGLE
     Dates: start: 20141114, end: 20141114
  2. BOTULINUM TOXIN TYPE A - GENERAL (9060X) [Suspect]
     Active Substance: BOTULINUM TOXIN TYPE A
     Dosage: UNK, SINGLE
     Dates: start: 20150313, end: 20150313

REACTIONS (3)
  - Metabolic acidosis [Not Recovered/Not Resolved]
  - Fall [Not Recovered/Not Resolved]
  - Acute kidney injury [Not Recovered/Not Resolved]

NARRATIVE: CASE EVENT DATE: 20150316
